FAERS Safety Report 16358436 (Version 1)
Quarter: 2019Q2

REPORT INFORMATION
  Report Type: Spontaneous
  Country: US (occurrence: US)
  Receive Date: 20190418
  Receipt Date: 20190418
  Transmission Date: 20190711
  Serious: Yes (Life-Threatening, Other)
  Sender: FDA-Public Use
  Company Number: None

PATIENT
  Age: 68 Year
  Sex: Male
  Weight: 124.74 kg

DRUGS (9)
  1. HUMULIN NOS [Concomitant]
     Active Substance: INSULIN HUMAN
  2. TAMSULOSIN HCL CAPS 0.4MG 1 A DAY [Concomitant]
  3. MOEXIPRI HCTZ [Concomitant]
  4. LABETAL [Concomitant]
  5. WALGREENS SYRINGE ONETOUCH ULTRA Z METER + STRIPS [Concomitant]
  6. AMLODIPINE/OLMESARTAN TABS 10MG [Concomitant]
  7. PAINBLOC24 [Suspect]
     Active Substance: CAPSAICIN
     Indication: ARTHRALGIA
     Route: 061
     Dates: start: 20190331, end: 20190402
  8. MELOXICAM 15MG [Concomitant]
     Active Substance: MELOXICAM
  9. SIMVATION [Concomitant]

REACTIONS (1)
  - Blood glucose decreased [None]

NARRATIVE: CASE EVENT DATE: 20190402
